FAERS Safety Report 6015527-9 (Version None)
Quarter: 2008Q4

REPORT INFORMATION
  Report Type: 
  Country: None (occurrence: None)
  Receive Date: 20081219
  Receipt Date: 20081219
  Transmission Date: 20090506
  Serious: Yes (Hospitalization)
  Sender: FDA-Public Use
  Company Number: None

PATIENT
  Age: 62 Year
  Sex: Male

DRUGS (2)
  1. METHADONE HCL [Suspect]
     Indication: PAIN
     Dosage: 80 MG TID PO
     Route: 048
     Dates: start: 20081127
  2. INSULIN [Suspect]
     Indication: DIABETES MELLITUS
     Dosage: 38 UNITS BID SQ
     Route: 058
     Dates: start: 20080718, end: 20081213

REACTIONS (7)
  - FALL [None]
  - HYPOGLYCAEMIA [None]
  - HYPOPHAGIA [None]
  - LOSS OF CONSCIOUSNESS [None]
  - REFUSAL OF TREATMENT BY PATIENT [None]
  - SOMNOLENCE [None]
  - TREATMENT NONCOMPLIANCE [None]
